FAERS Safety Report 4341975-9 (Version None)
Quarter: 2004Q1

REPORT INFORMATION
  Report Type: 
  Country: None (occurrence: None)
  Receive Date: 20040329
  Receipt Date: 20031231
  Transmission Date: 20041129
  Serious: No
  Sender: FDA-Public Use
  Company Number: 03P-163-0246045-00

PATIENT
  Age: 70 Year
  Sex: Female
  Weight: 44.9061 kg

DRUGS (8)
  1. HUMIRA [Suspect]
     Indication: RHEUMATOID ARTHRITIS
     Dosage: 40 MG, 1 IN 2 WK, SUBCUTANEOUS
     Route: 058
     Dates: start: 20031203
  2. CELECOXIB [Concomitant]
  3. RALOXIFENE HCL [Concomitant]
  4. DOCUSATE SODIUM [Concomitant]
  5. CALCIUM [Concomitant]
  6. MULTI-VITAMINS [Concomitant]
  7. DARVOCET [Concomitant]
  8. GABAPENTIN [Concomitant]

REACTIONS (1)
  - INJECTION SITE BURNING [None]
